FAERS Safety Report 5757998-9 (Version None)
Quarter: 2008Q2

REPORT INFORMATION
  Report Type: 
  Country: None (occurrence: None)
  Receive Date: 20080602
  Receipt Date: 20080602
  Transmission Date: 20081010
  Serious: No
  Sender: FDA-Public Use
  Company Number: None

PATIENT
  Sex: Female
  Weight: 86.1834 kg

DRUGS (1)
  1. LUPRON [Suspect]

REACTIONS (20)
  - ANXIETY [None]
  - ARTHRALGIA [None]
  - CONTACT LENS INTOLERANCE [None]
  - DEPRESSION [None]
  - DISTURBANCE IN ATTENTION [None]
  - DRY EYE [None]
  - DRY SKIN [None]
  - FAT TISSUE INCREASED [None]
  - FATIGUE [None]
  - FEELING ABNORMAL [None]
  - HEADACHE [None]
  - IRRITABILITY [None]
  - MALAISE [None]
  - MEMORY IMPAIRMENT [None]
  - MYALGIA [None]
  - PAIN [None]
  - PARTNER STRESS [None]
  - QUALITY OF LIFE DECREASED [None]
  - SOMNOLENCE [None]
  - WEIGHT INCREASED [None]
